FAERS Safety Report 9664901 (Version 1)
Quarter: 2013Q4

REPORT INFORMATION
  Report Type: Spontaneous
  Country: FI (occurrence: FI)
  Receive Date: 20131101
  Receipt Date: 20131101
  Transmission Date: 20140711
  Serious: Yes (Death, Hospitalization)
  Sender: FDA-Public Use
  Company Number: FI-GLAXOSMITHKLINE-B0938297A

PATIENT
  Age: 85 Year
  Sex: Female

DRUGS (24)
  1. FLIXOTIDE EVOHALER [Suspect]
     Indication: PRODUCT USED FOR UNKNOWN INDICATION
     Dosage: 125MCG TWICE PER DAY
     Route: 055
     Dates: start: 20070309
  2. SOMAC [Suspect]
     Indication: PRODUCT USED FOR UNKNOWN INDICATION
     Dosage: 20MG PER DAY
     Route: 065
     Dates: start: 20130506
  3. LITALGIN [Suspect]
     Indication: PRODUCT USED FOR UNKNOWN INDICATION
     Route: 065
     Dates: start: 20110816
  4. VI-SIBLIN [Suspect]
     Indication: PRODUCT USED FOR UNKNOWN INDICATION
     Route: 065
     Dates: start: 20110905
  5. DIFORMIN RETARD [Suspect]
     Indication: PRODUCT USED FOR UNKNOWN INDICATION
     Dosage: 500MG TWICE PER DAY
     Route: 065
  6. PRADAXA [Suspect]
     Indication: PRODUCT USED FOR UNKNOWN INDICATION
     Dosage: 110MG TWICE PER DAY
     Route: 065
     Dates: start: 20130704
  7. FOLVITE [Suspect]
     Indication: PRODUCT USED FOR UNKNOWN INDICATION
     Dosage: 1MG PER DAY
     Route: 065
     Dates: start: 20130110
  8. FURESIS [Suspect]
     Indication: PRODUCT USED FOR UNKNOWN INDICATION
     Dosage: 20MG TWICE PER DAY
     Route: 065
     Dates: start: 20070724
  9. PRAVASTATIN [Suspect]
     Indication: PRODUCT USED FOR UNKNOWN INDICATION
     Dosage: 40MG PER DAY
     Route: 065
     Dates: start: 20110728
  10. TREXAN [Suspect]
     Indication: PRODUCT USED FOR UNKNOWN INDICATION
     Dosage: 10MG WEEKLY
     Route: 065
     Dates: start: 20130110
  11. APURIN SANDOZ [Suspect]
     Indication: PRODUCT USED FOR UNKNOWN INDICATION
     Dates: start: 20111102, end: 20130930
  12. NORSPAN [Suspect]
     Indication: PRODUCT USED FOR UNKNOWN INDICATION
     Route: 065
     Dates: start: 20130604
  13. ZOPICLONE [Suspect]
     Indication: PRODUCT USED FOR UNKNOWN INDICATION
     Dosage: 7.5MG PER DAY
     Dates: start: 20130110
  14. FLUTICASONE NASAL SPRAY [Suspect]
     Indication: PRODUCT USED FOR UNKNOWN INDICATION
     Dosage: 50MCG TWICE PER DAY
     Dates: start: 20101015
  15. BRICANYL TURBUHALER [Suspect]
     Indication: PRODUCT USED FOR UNKNOWN INDICATION
     Route: 055
     Dates: start: 20070814
  16. IPRAMOL [Suspect]
     Indication: PRODUCT USED FOR UNKNOWN INDICATION
     Route: 065
     Dates: start: 20130910
  17. OFTAGEL [Suspect]
     Indication: PRODUCT USED FOR UNKNOWN INDICATION
     Route: 065
     Dates: start: 20130219
  18. MYCOSTATIN [Concomitant]
     Dosage: 1ML FOUR TIMES PER DAY
     Route: 065
     Dates: start: 20130911
  19. CALCICHEW D3 FORTE [Concomitant]
     Dates: start: 20120821
  20. KALEORID [Concomitant]
     Dosage: 1G TWICE PER DAY
     Dates: start: 20130506
  21. DINIT [Concomitant]
     Dates: start: 20070306
  22. ISANGINA [Concomitant]
     Dosage: 25MG PER DAY
     Dates: start: 20070403
  23. ORLOC [Concomitant]
     Dosage: 10MG PER DAY
     Dates: start: 20130528
  24. PARACETAMOL [Concomitant]
     Dosage: 500MG THREE TIMES PER DAY
     Dates: start: 20070814

REACTIONS (7)
  - Bone marrow failure [Fatal]
  - Tongue haemorrhage [Unknown]
  - Oral pain [Unknown]
  - Fatigue [Unknown]
  - Neutropenic infection [Unknown]
  - General physical health deterioration [Unknown]
  - Haematoma [Unknown]
